FAERS Safety Report 5781254 (Version 3)
Quarter: 2013Q3

REPORT INFORMATION
  Report Type: Spontaneous
  Country: ES (occurrence: ES)
  Receive Date: 20050425
  Receipt Date: 20130716
  Transmission Date: 20140515
  Serious: Yes (Hospitalization, Other)
  Sender: FDA-Public Use
  Company Number: ES-JNJFOC-20050403535

PATIENT
  Age: 48 Year
  Sex: Female

DRUGS (2)
  1. INFLIXIMAB [Suspect]
     Indication: RHEUMATOID ARTHRITIS
     Route: 042
     Dates: start: 200002, end: 200202
  2. METHOTREXATE [Concomitant]
     Route: 065
     Dates: start: 200002

REACTIONS (3)
  - Paradoxical drug reaction [Not Recovered/Not Resolved]
  - Disseminated tuberculosis [Not Recovered/Not Resolved]
  - Immune reconstitution inflammatory syndrome [Recovered/Resolved]
